FAERS Safety Report 13919714 (Version 1)
Quarter: 2017Q3

REPORT INFORMATION
  Report Type: Spontaneous
  Country: US (occurrence: US)
  Receive Date: 20170830
  Receipt Date: 20170830
  Transmission Date: 20171127
  Serious: No
  Sender: FDA-Public Use
  Company Number: US-BECTON DICKINSON-2017BDN00185

PATIENT
  Sex: Male
  Weight: 14.06 kg

DRUGS (4)
  1. CHLORAPREP [Suspect]
     Active Substance: CHLORHEXIDINE GLUCONATE\ISOPROPYL ALCOHOL
     Indication: INFECTION PROPHYLAXIS
     Dosage: UNK
     Dates: start: 2017
  2. REMODULIN [Suspect]
     Active Substance: TREPROSTINIL
     Indication: PULMONARY HYPERTENSION
     Dosage: 46 NG/KG, CONTINUOUS
     Route: 041
     Dates: start: 20170120
  3. TEGADERM [Suspect]
     Active Substance: 2-HYDROXYETHYL METHACRYLATE
  4. SILDENAFIL CITRATE. [Concomitant]
     Active Substance: SILDENAFIL CITRATE

REACTIONS (3)
  - Dermatitis contact [Unknown]
  - Device related infection [Unknown]
  - Injection site irritation [Unknown]

NARRATIVE: CASE EVENT DATE: 2017
